FAERS Safety Report 9836481 (Version 1)
Quarter: 2014Q1

REPORT INFORMATION
  Report Type: Other
  Country: US (occurrence: US)
  Receive Date: 20140123
  Receipt Date: 20140123
  Transmission Date: 20141002
  Serious: Yes (Other)
  Sender: FDA-Public Use
  Company Number: US-BRISTOL-MYERS SQUIBB COMPANY-20045415

PATIENT
  Age: 53 Year
  Sex: Female

DRUGS (11)
  1. TRIAMCINOLONE ACE INJ [Suspect]
     Route: 008
  2. NAPROXEN SODIUM [Concomitant]
  3. GABAPENTIN [Concomitant]
  4. NORTRIPTYLINE [Concomitant]
  5. SIMVASTATIN [Concomitant]
  6. HYDROCHLOROTHIAZIDE [Concomitant]
  7. BENAZEPRIL HCL [Concomitant]
  8. CALCIUM CARBONATE [Concomitant]
  9. MULTIVITAMIN [Concomitant]
  10. OMEGA-3 [Concomitant]
  11. FISH OIL [Concomitant]

REACTIONS (3)
  - Hypothalamic pituitary adrenal axis suppression [Unknown]
  - Cushing^s syndrome [Unknown]
  - Incorrect route of drug administration [Unknown]
